FAERS Safety Report 8784914 (Version 2)
Quarter: 2013Q4

REPORT INFORMATION
  Report Type: Spontaneous
  Country: US (occurrence: US)
  Receive Date: 20120914
  Receipt Date: 20131105
  Transmission Date: 20140711
  Serious: Yes (Hospitalization, Other)
  Sender: FDA-Public Use
  Company Number: US-009507513-1208USA007684

PATIENT
  Age: 48 Year
  Sex: Female

DRUGS (4)
  1. PEGINTRON [Suspect]
     Indication: HEPATITIS C
     Dosage: UNK
     Route: 058
     Dates: start: 20120208
  2. REBETOL [Suspect]
     Indication: HEPATITIS C
     Dosage: UNK
     Route: 048
     Dates: start: 20120208
  3. VICTRELIS [Suspect]
     Indication: HEPATITIS C
     Dosage: UNK
     Dates: start: 20120214, end: 20120321
  4. NEXIUM [Concomitant]
     Dosage: UNK

REACTIONS (8)
  - Haemorrhoid operation [Unknown]
  - Surgery [Unknown]
  - Lymphadenectomy [Unknown]
  - Yellow skin [Unknown]
  - Fall [Unknown]
  - Rib fracture [Unknown]
  - Pain [Unknown]
  - Dysgeusia [Unknown]
